FAERS Safety Report 13397395 (Version 2)
Quarter: 2017Q2

REPORT INFORMATION
  Report Type: Spontaneous
  Country: RS (occurrence: RS)
  Receive Date: 20170403
  Receipt Date: 20170531
  Transmission Date: 20170830
  Serious: Yes (Other)
  Sender: FDA-Public Use
  Company Number: RS-PFIZER INC-2017138839

PATIENT
  Age: 73 Year
  Sex: Male
  Weight: 69 kg

DRUGS (3)
  1. FRAGMIN [Suspect]
     Active Substance: DALTEPARIN SODIUM
     Dosage: 5000 IU, 2X/DAY
     Route: 058
  2. FRAGMIN [Suspect]
     Active Substance: DALTEPARIN SODIUM
     Indication: PROPHYLAXIS
     Dosage: 2500 IU, 2X/DAY
     Route: 058
  3. FRAGMIN [Suspect]
     Active Substance: DALTEPARIN SODIUM
     Dosage: 7500 IU, 2X/DAY
     Route: 058

REACTIONS (4)
  - Renal failure [Unknown]
  - Retroperitoneal haematoma [Recovered/Resolved]
  - Thrombosis [Recovering/Resolving]
  - Blood count abnormal [Unknown]
